FAERS Safety Report 9470886 (Version 1)
Quarter: 2013Q3

REPORT INFORMATION
  Report Type: Spontaneous
  Country: US (occurrence: US)
  Receive Date: 20130822
  Receipt Date: 20130822
  Transmission Date: 20140515
  Serious: No
  Sender: FDA-Public Use
  Company Number: US-PFIZER INC-2013239985

PATIENT
  Age: 47 Year
  Sex: Male
  Weight: 111 kg

DRUGS (1)
  1. NARDIL [Suspect]
     Indication: DEPRESSION
     Dosage: 45 MG, 2X/DAY
     Route: 048
     Dates: start: 2012

REACTIONS (1)
  - Upper respiratory tract infection [Recovering/Resolving]
